FAERS Safety Report 9940863 (Version 2)
Quarter: 2014Q2

REPORT INFORMATION
  Report Type: Spontaneous
  Country: DE (occurrence: DE)
  Receive Date: 20140303
  Receipt Date: 20140620
  Transmission Date: 20141212
  Serious: Yes (Death, Hospitalization)
  Sender: FDA-Public Use
  Company Number: DE-WATSON-2014-03210

PATIENT
  Age: 80 Year
  Sex: Female
  Weight: 65 kg

DRUGS (14)
  1. METFORMIN HYDROCHLORIDE (UNKNOWN) [Suspect]
     Indication: TYPE 2 DIABETES MELLITUS
     Dosage: 1000 MG, DAILY
     Route: 048
     Dates: start: 2011, end: 201401
  2. ONGLYZA [Suspect]
     Indication: TYPE 2 DIABETES MELLITUS
     Dosage: 5 MG, DAILY
     Route: 048
     Dates: start: 201309, end: 201401
  3. MADOPAR [Concomitant]
     Indication: RESTLESSNESS
     Dosage: 62.5 MG, DAILY
     Route: 048
  4. MIRTAZAPIN [Concomitant]
     Indication: DEPRESSION
     Dosage: 30 MG, DAILY
     Route: 048
  5. ROPINIROL [Concomitant]
     Indication: PRODUCT USED FOR UNKNOWN INDICATION
     Dosage: 0.5 MG, DAILY
     Route: 048
  6. GABAPENTIN [Concomitant]
     Indication: PRODUCT USED FOR UNKNOWN INDICATION
     Dosage: 900 MG, DAILY
     Route: 048
  7. PANTOPRAZOL [Concomitant]
     Indication: PRODUCT USED FOR UNKNOWN INDICATION
     Dosage: 40 MG, DAILY
     Route: 048
  8. NOVALGIN                           /00169801/ [Concomitant]
     Dosage: 2000 MG, DAILY
     Route: 048
  9. TILIDIN [Concomitant]
     Indication: PRODUCT USED FOR UNKNOWN INDICATION
     Dosage: 100/8 MG, 1-0-1
     Route: 048
  10. FOLSAEURE [Concomitant]
     Indication: PRODUCT USED FOR UNKNOWN INDICATION
     Dosage: 5 MG, DAILY
     Route: 048
  11. MCP                                /00041901/ [Concomitant]
     Indication: PRODUCT USED FOR UNKNOWN INDICATION
     Dosage: 90 GTT, DAILY
     Route: 048
  12. KALINOR-BRAUSETABLETTEN [Concomitant]
     Indication: PRODUCT USED FOR UNKNOWN INDICATION
     Dosage: 1-0-0, UNK
     Route: 048
  13. ACTRAPHANE [Concomitant]
     Indication: PRODUCT USED FOR UNKNOWN INDICATION
     Dosage: NACH PLAN
     Route: 048
  14. ATORVASTATIN [Concomitant]
     Indication: HYPERLIPIDAEMIA
     Dosage: UNKNOWN
     Route: 065

REACTIONS (1)
  - Pancreatitis acute [Fatal]
